FAERS Safety Report 8472958-5 (Version None)
Quarter: 2012Q2

REPORT INFORMATION
  Report Type: 
  Country: None (occurrence: None)
  Receive Date: 20120627
  Receipt Date: 20110512
  Transmission Date: 20120825
  Serious: No
  Sender: FDA-Public Use
  Company Number: US-MYLANLABS-2011S1010134

PATIENT
  Age: 68 Year
  Sex: Female
  Weight: 83.92 kg

DRUGS (9)
  1. METHOTREXATE [Suspect]
     Indication: DERMATOMYOSITIS
     Route: 048
     Dates: start: 20110301
  2. PREDNISONE TAB [Suspect]
     Dates: start: 20101001
  3. HYDROCHLOROTHIAZIDE [Suspect]
     Indication: BLOOD PRESSURE
     Route: 048
  4. PREDNISONE TAB [Suspect]
     Dates: start: 20101201
  5. LEUCOVORIN CALCIUM [Suspect]
     Indication: DERMATOMYOSITIS
     Dates: start: 20110401
  6. ACYCLOVIR [Suspect]
     Indication: HERPES SIMPLEX
     Dosage: 1-2 TABLETS DAILY
     Route: 048
     Dates: start: 20101101
  7. HYDROXYCHLOROQUINE SULFATE [Suspect]
     Indication: DERMATOMYOSITIS
     Route: 048
     Dates: start: 20110301
  8. MULTI-VITAMIN [Suspect]
     Indication: VITAMIN SUPPLEMENTATION
     Route: 048
  9. PREDNISONE TAB [Suspect]
     Indication: DERMATOMYOSITIS
     Route: 048
     Dates: start: 20101201

REACTIONS (4)
  - URTICARIA [None]
  - REACTION TO DRUG EXCIPIENTS [None]
  - DRUG INTERACTION [None]
  - RASH PRURITIC [None]
